FAERS Safety Report 5377780-4 (Version None)
Quarter: 2007Q2

REPORT INFORMATION
  Report Type: 
  Country: None (occurrence: None)
  Receive Date: 20070629
  Receipt Date: 20070625
  Transmission Date: 20071010
  Serious: Yes (Death, Hospitalization)
  Sender: FDA-Public Use
  Company Number: TCI2007A01404

PATIENT
  Age: 77 Year
  Sex: Male

DRUGS (5)
  1. LEUPROLIDE ACETATE [Suspect]
     Indication: PROSTATE CANCER STAGE III
     Dosage: 11.25 MG (11.25 MG, 1 IN 12 WK) SUBCUTANEOUS
     Route: 058
     Dates: start: 20060901, end: 20060901
  2. CASODEX [Concomitant]
  3. PREDNISOLONE [Concomitant]
  4. OMEPRAL (OMEPRAZOLE) [Concomitant]
  5. GASTROM (ECABET MONOSODIUM) (GRANULATE) [Concomitant]

REACTIONS (4)
  - CANDIDA SEROLOGY POSITIVE [None]
  - CONDITION AGGRAVATED [None]
  - INTERSTITIAL LUNG DISEASE [None]
  - NO THERAPEUTIC RESPONSE [None]
